FAERS Safety Report 8286850 (Version 5)
Quarter: 2013Q2

REPORT INFORMATION
  Report Type: Spontaneous
  Country: US (occurrence: US)
  Receive Date: 20111213
  Receipt Date: 20130516
  Transmission Date: 20140414
  Serious: Yes (Disabling, Other)
  Sender: FDA-Public Use
  Company Number: US-BAYER-2011-118400

PATIENT
  Age: 31 Year
  Sex: Male

DRUGS (1)
  1. AVELOX [Suspect]
     Indication: BRONCHITIS
     Dosage: 400 MG, QD
     Route: 048
     Dates: start: 20111025, end: 20111030

REACTIONS (34)
  - Psychotic disorder [Not Recovered/Not Resolved]
  - Impaired work ability [None]
  - Insomnia [Not Recovered/Not Resolved]
  - Personality disorder [None]
  - Palpitations [Not Recovered/Not Resolved]
  - Panic attack [None]
  - Arthralgia [Not Recovered/Not Resolved]
  - Tremor [Not Recovered/Not Resolved]
  - Dizziness [Not Recovered/Not Resolved]
  - Tremor [Not Recovered/Not Resolved]
  - Anxiety [Not Recovered/Not Resolved]
  - Bedridden [None]
  - Nausea [None]
  - Disturbance in attention [None]
  - Headache [None]
  - Tinnitus [None]
  - Dyspnoea [None]
  - Dry mouth [None]
  - Metamorphopsia [None]
  - Burning sensation [None]
  - Pain [None]
  - Amnesia [None]
  - Hypoaesthesia [None]
  - Pain in extremity [None]
  - Myalgia [None]
  - Tendon pain [None]
  - Depression [None]
  - Dry eye [None]
  - Muscle twitching [None]
  - Tremor [None]
  - Activities of daily living impaired [None]
  - Injury [None]
  - Emotional distress [None]
  - Autonomic nervous system imbalance [None]
